FAERS Safety Report 13298581 (Version 2)
Quarter: 2017Q1

REPORT INFORMATION
  Report Type: Spontaneous
  Country: KR (occurrence: KR)
  Receive Date: 20170306
  Receipt Date: 20170310
  Transmission Date: 20170428
  Serious: Yes (Other)
  Sender: FDA-Public Use
  Company Number: KR-009507513-1703KOR000861

PATIENT
  Age: 54 Year
  Sex: Male
  Weight: 67.5 kg

DRUGS (45)
  1. FLUOROURACIL. [Concomitant]
     Active Substance: FLUOROURACIL
     Dosage: 1500 MG, QD (CYCLE 3)
     Route: 042
     Dates: start: 20170207, end: 20170210
  2. DEXAMETHASONE SODIUM PHOSPHATE. [Concomitant]
     Active Substance: DEXAMETHASONE SODIUM PHOSPHATE
     Dosage: 8 MG, ONCE
     Route: 042
     Dates: start: 20170116, end: 20170116
  3. ALOXI [Concomitant]
     Active Substance: PALONOSETRON HYDROCHLORIDE
     Dosage: 0.25 MG, ONCE
     Route: 042
     Dates: start: 20170207, end: 20170207
  4. GINEXIN F [Concomitant]
     Indication: CEREBRAL INFARCTION
     Dosage: 1 TABLET, BID
     Route: 048
     Dates: start: 20150417
  5. MOTILITONE [Concomitant]
     Active Substance: HERBALS
     Indication: PROPHYLAXIS
     Dosage: 1 TABLET, QD; STRENGTH REPORTED AS: ^5:1^
     Route: 048
     Dates: start: 20161214
  6. MACPERAN [Concomitant]
     Active Substance: METOCLOPRAMIDE HYDROCHLORIDE
     Indication: PROPHYLAXIS OF NAUSEA AND VOMITING
     Dosage: 10 MG, TID
     Route: 042
     Dates: start: 20170116, end: 20170119
  7. MACPERAN [Concomitant]
     Active Substance: METOCLOPRAMIDE HYDROCHLORIDE
     Dosage: 10 MG, TID
     Route: 042
     Dates: start: 20170206, end: 20170210
  8. ALOXI [Concomitant]
     Active Substance: PALONOSETRON HYDROCHLORIDE
     Indication: PROPHYLAXIS OF NAUSEA AND VOMITING
     Dosage: 0.25 MG, ONCE
     Route: 042
     Dates: start: 20161219, end: 20161219
  9. HEXAMEDINE [Concomitant]
     Indication: DENTAL DISORDER PROPHYLAXIS
     Dosage: 25 ML, QID
     Dates: start: 20161218, end: 20161224
  10. TANTUM [Concomitant]
     Active Substance: BENZYDAMINE HYDROCHLORIDE
     Dosage: 25 ML, QID
     Dates: start: 20170116, end: 20170120
  11. MANNITOL. [Concomitant]
     Active Substance: MANNITOL
     Indication: PROPHYLAXIS
     Dosage: 90 ML, ONCE; STRENGTH ALSO REPORTED AS^100 ML^
     Route: 042
     Dates: start: 20161219, end: 20161219
  12. PRIMALAN [Concomitant]
     Active Substance: MEQUITAZINE
     Indication: RHINORRHOEA
     Dosage: 0.5 TABLET, BID
     Route: 048
     Dates: start: 20161220, end: 20161228
  13. INDENOL [Concomitant]
     Active Substance: PROPRANOLOL HYDROCHLORIDE
     Indication: BLOOD PRESSURE INCREASED
     Dosage: 1 TABLET, BID
     Route: 048
     Dates: start: 20170105, end: 20170119
  14. CISPLAN [Concomitant]
     Active Substance: CISPLATIN
     Dosage: 80 MG, ONCE (CYCLE 2)
     Route: 042
     Dates: start: 20170116, end: 20170116
  15. FLUOROURACIL. [Concomitant]
     Active Substance: FLUOROURACIL
     Indication: CHEMOTHERAPY
     Dosage: 1730 MG, QD (CYCLE 1)
     Route: 042
     Dates: start: 20161219, end: 20161222
  16. DEXAMETHASONE SODIUM PHOSPHATE. [Concomitant]
     Active Substance: DEXAMETHASONE SODIUM PHOSPHATE
     Indication: PROPHYLAXIS OF NAUSEA AND VOMITING
     Dosage: 8 MG, ONCE
     Route: 042
     Dates: start: 20161219, end: 20161219
  17. ALOXI [Concomitant]
     Active Substance: PALONOSETRON HYDROCHLORIDE
     Dosage: 0.25 MG, ONCE
     Route: 042
     Dates: start: 20170116, end: 20170116
  18. ALPRAM [Concomitant]
     Active Substance: ALPRAZOLAM
     Indication: CEREBELLAR ATROPHY
     Dosage: 0.5 TABLET, BID
     Route: 048
     Dates: start: 20150327
  19. ATIVAN [Concomitant]
     Active Substance: LORAZEPAM
     Indication: ANXIETY
     Dosage: 1 TABLET, QD
     Route: 048
     Dates: start: 20160127
  20. ACTINAMIDE [Concomitant]
     Indication: CEREBELLAR ATAXIA
     Dosage: 1 DF, ONCE
     Dates: start: 20161214, end: 20161214
  21. HEXAMEDINE [Concomitant]
     Dosage: 25 ML, QID
     Dates: start: 20170205, end: 20170211
  22. MANNITOL. [Concomitant]
     Active Substance: MANNITOL
     Dosage: 90 ML, ONCE; STRENGTH ALSO REPORTED AS^100 ML^
     Route: 042
     Dates: start: 20170116, end: 20170116
  23. EMEND (FOSAPREPITANT DIMEGLUMINE) [Suspect]
     Active Substance: FOSAPREPITANT DIMEGLUMINE
     Dosage: 150 MG, ONCE
     Route: 042
     Dates: start: 20170116, end: 20170116
  24. EMEND (FOSAPREPITANT DIMEGLUMINE) [Suspect]
     Active Substance: FOSAPREPITANT DIMEGLUMINE
     Dosage: 150 MG, ONCE
     Route: 042
     Dates: start: 20170207, end: 20170207
  25. TANTUM [Concomitant]
     Active Substance: BENZYDAMINE HYDROCHLORIDE
     Indication: DENTAL DISORDER PROPHYLAXIS
     Dosage: 25 ML, QID
     Dates: start: 20161218, end: 20161224
  26. TANTUM [Concomitant]
     Active Substance: BENZYDAMINE HYDROCHLORIDE
     Dosage: 25 ML, QID
     Dates: start: 20170205, end: 20170211
  27. TYLENOL [Concomitant]
     Active Substance: ACETAMINOPHEN
     Indication: HEADACHE
     Dosage: 1 TABLET, TID
     Route: 048
     Dates: start: 20161222, end: 20170120
  28. SIBELIUM [Concomitant]
     Active Substance: FLUNARIZINE
     Indication: HEADACHE
     Dosage: 1 CAPSULE, BID
     Route: 048
     Dates: start: 20170105, end: 20170119
  29. CISPLAN [Concomitant]
     Active Substance: CISPLATIN
     Dosage: 80 MG, ONCE (CYCLE 3)
     Route: 042
     Dates: start: 20170207, end: 20170207
  30. BACLOFEN. [Concomitant]
     Active Substance: BACLOFEN
     Indication: CEREBELLAR ATROPHY
     Dosage: 1 TABLET, BID
     Route: 048
     Dates: start: 20150527
  31. HEXAMEDINE [Concomitant]
     Dosage: 25 ML, QID
     Dates: start: 20170116, end: 20170120
  32. FLUOROURACIL. [Concomitant]
     Active Substance: FLUOROURACIL
     Dosage: 1500 MG, QD (CYCLE 2)
     Route: 042
     Dates: start: 20170116, end: 20170119
  33. DEXAMETHASONE SODIUM PHOSPHATE. [Concomitant]
     Active Substance: DEXAMETHASONE SODIUM PHOSPHATE
     Dosage: 8 MG, ONCE
     Route: 042
     Dates: start: 20170207, end: 20170207
  34. ALPRAM [Concomitant]
     Active Substance: ALPRAZOLAM
     Dosage: 1 TABLET, QD
     Route: 048
     Dates: start: 20150327
  35. ESOMEZOL (ESOMEPRAZOLE STRONTIUM) [Concomitant]
     Active Substance: ESOMEPRAZOLE STRONTIUM
     Indication: PROPHYLAXIS
     Dosage: 1 TABLET, QD
     Route: 048
     Dates: start: 20150401
  36. VITAMEDIN CAPSULES [Concomitant]
     Indication: FEELING ABNORMAL
     Dosage: 1 TABLET, BID
     Route: 048
     Dates: start: 20160629
  37. TYLENOL [Concomitant]
     Active Substance: ACETAMINOPHEN
     Dosage: 1 TABLET, QD
     Route: 048
     Dates: start: 20170206, end: 20170207
  38. SENSIVAL [Concomitant]
     Indication: ANXIETY
     Dosage: 0.5 TABLET, BID
     Route: 048
     Dates: start: 20170105, end: 20170119
  39. EMEND (FOSAPREPITANT DIMEGLUMINE) [Suspect]
     Active Substance: FOSAPREPITANT DIMEGLUMINE
     Indication: PROPHYLAXIS OF NAUSEA AND VOMITING
     Dosage: 150 MG, ONCE
     Route: 042
     Dates: start: 20161219, end: 20161219
  40. CISPLAN [Concomitant]
     Active Substance: CISPLATIN
     Indication: CHEMOTHERAPY
     Dosage: 90 MG, ONCE (CYCLE 1)
     Route: 042
     Dates: start: 20161219, end: 20161219
  41. ASPIRIN PROTECT [Concomitant]
     Active Substance: ASPIRIN
     Indication: CEREBRAL INFARCTION
     Dosage: 1 TABLET, QD
     Route: 048
     Dates: start: 20150417
  42. MIRAPEX [Concomitant]
     Active Substance: PRAMIPEXOLE DIHYDROCHLORIDE
     Indication: CEREBELLAR ATROPHY
     Dosage: 0.5 TABLET, BID
     Route: 048
     Dates: start: 20161214
  43. MANNITOL. [Concomitant]
     Active Substance: MANNITOL
     Dosage: 90 ML, QD; STRENGTH ALSO REPORTED AS^100 ML^
     Route: 042
     Dates: start: 20170206, end: 20170210
  44. MACPERAN [Concomitant]
     Active Substance: METOCLOPRAMIDE HYDROCHLORIDE
     Indication: PROPHYLAXIS OF NAUSEA AND VOMITING
     Dosage: 10 MG, TID
     Route: 042
     Dates: start: 20161219, end: 20161222
  45. NORZYME [Concomitant]
     Indication: PROPHYLAXIS
     Dosage: 1 CAPSULE, TID
     Route: 048
     Dates: start: 20170120

REACTIONS (2)
  - Neutrophil percentage decreased [Recovered/Resolved]
  - Fluid imbalance [Recovered/Resolved]

NARRATIVE: CASE EVENT DATE: 20170206
